FAERS Safety Report 22748338 (Version 2)
Quarter: 2024Q1

REPORT INFORMATION
  Report Type: Spontaneous
  Country: CA (occurrence: CA)
  Receive Date: 20230725
  Receipt Date: 20240320
  Transmission Date: 20240409
  Serious: No
  Sender: FDA-Public Use
  Company Number: CA-FERRINGPH-2023FE02836

PATIENT

DRUGS (1)
  1. ENDOMETRIN [Suspect]
     Active Substance: PROGESTERONE
     Indication: In vitro fertilisation
     Dosage: 100 MG, 3 TIMES DAILY
     Route: 067
     Dates: start: 20230517, end: 20230606

REACTIONS (2)
  - Vaginal discharge [Recovered/Resolved]
  - Recalled product administered [Recovered/Resolved]

NARRATIVE: CASE EVENT DATE: 20230531
